FAERS Safety Report 7773350-9 (Version None)
Quarter: 2011Q3

REPORT INFORMATION
  Report Type: 
  Country: None (occurrence: None)
  Receive Date: 20110922
  Receipt Date: 20110916
  Transmission Date: 20111222
  Serious: Yes (Other)
  Sender: FDA-Public Use
  Company Number: CN-ASTRAZENECA-2011SE55685

PATIENT
  Age: 37 Year
  Sex: Female
  Weight: 56 kg

DRUGS (4)
  1. PRILOSEC [Suspect]
     Indication: HELICOBACTER GASTRITIS
     Route: 048
     Dates: start: 20110901, end: 20110901
  2. AZITHROMYCIN [Concomitant]
     Indication: HELICOBACTER INFECTION
     Route: 048
     Dates: start: 20110901, end: 20110901
  3. COLLOIDAL BISMMTH PECTIN CAPSULES [Concomitant]
     Indication: HELICOBACTER INFECTION
     Route: 048
     Dates: start: 20110901, end: 20110901
  4. CLARITHROMYCIN [Concomitant]
     Indication: HELICOBACTER INFECTION
     Route: 048
     Dates: start: 20110901, end: 20110901

REACTIONS (6)
  - RETINAL HAEMORRHAGE [None]
  - HEADACHE [None]
  - VISION BLURRED [None]
  - PAPILLOEDEMA [None]
  - DIZZINESS [None]
  - NAUSEA [None]
